FAERS Safety Report 8230528-8 (Version None)
Quarter: 2012Q1

REPORT INFORMATION
  Report Type: 
  Country: None (occurrence: None)
  Receive Date: 20120322
  Receipt Date: 20120322
  Transmission Date: 20120608
  Serious: Yes (Other)
  Sender: FDA-Public Use
  Company Number: None

PATIENT
  Sex: Male
  Weight: 72 kg

DRUGS (4)
  1. DOXYCYCLINE [Concomitant]
  2. TASIGNA [Suspect]
     Dosage: 200 MG TWICE DAILY PO
     Route: 048
     Dates: start: 20120220, end: 20120229
  3. VICODIN [Concomitant]
  4. TASIGNA [Suspect]
     Dosage: 200 MG DAILY PO
     Route: 048
     Dates: start: 20120311, end: 20120321

REACTIONS (1)
  - LABORATORY TEST ABNORMAL [None]
